FAERS Safety Report 11794243 (Version 1)
Quarter: 2015Q4

REPORT INFORMATION
  Report Type: Spontaneous
  Country: CZ (occurrence: CZ)
  Receive Date: 20151202
  Receipt Date: 20151202
  Transmission Date: 20160305
  Serious: Yes (Hospitalization)
  Sender: FDA-Public Use
  Company Number: PHHY2015CZ154596

PATIENT
  Age: 80 Year
  Sex: Female
  Weight: 64 kg

DRUGS (3)
  1. INDAP [Concomitant]
     Indication: HYPERTENSION
     Dosage: 2.5 MG, UNK
     Route: 065
  2. MICARDIS [Concomitant]
     Active Substance: TELMISARTAN
     Indication: HYPERTENSION
     Dosage: 40 MG, QD
     Route: 065
  3. BIODROXIL [Suspect]
     Active Substance: CEFADROXIL
     Indication: INFECTION
     Route: 065
     Dates: start: 20151027

REACTIONS (4)
  - Accelerated hypertension [Recovered/Resolved]
  - Cardiac disorder [None]
  - Renal disorder [None]
  - Hypokalaemia [Unknown]

NARRATIVE: CASE EVENT DATE: 20151029
